FAERS Safety Report 7237438-3 (Version None)
Quarter: 2011Q1

REPORT INFORMATION
  Report Type: 
  Country: None (occurrence: None)
  Receive Date: 20110121
  Receipt Date: 20110113
  Transmission Date: 20110831
  Serious: Yes (Hospitalization)
  Sender: FDA-Public Use
  Company Number: GB-B.I. PHARMACEUTICALS,INC./RIDGEFIELD-2009-DE-05503GD

PATIENT
  Age: 23 Year
  Sex: Female

DRUGS (2)
  1. DIPYRIDAMOLE [Suspect]
     Indication: ANTIPLATELET THERAPY
     Dosage: 200 MG
  2. ASPIRIN [Suspect]
     Indication: ANTIPLATELET THERAPY
     Dosage: 300 MG, WITH THE INSTRUCTION OF A DECREASE  TO 75 MG ON THE 10TH DAY OF TREATMENT

REACTIONS (2)
  - THROMBOCYTOPENIA [None]
  - GINGIVAL BLEEDING [None]
